FAERS Safety Report 8265653-9 (Version None)
Quarter: 2012Q2

REPORT INFORMATION
  Report Type: 
  Country: None (occurrence: None)
  Receive Date: 20120406
  Receipt Date: 20120403
  Transmission Date: 20120825
  Serious: Yes (Death)
  Sender: FDA-Public Use
  Company Number: US-ABBOTT-12P-163-0921694-00

PATIENT
  Sex: Female
  Weight: 34.05 kg

DRUGS (16)
  1. HUMIRA [Suspect]
     Indication: CROHN'S DISEASE
     Dates: end: 20090101
  2. METHADONE HCL [Concomitant]
     Indication: PANCREATITIS
  3. ZOFRAN [Concomitant]
     Indication: NAUSEA
  4. PREMARIN [Concomitant]
     Indication: PRODUCT USED FOR UNKNOWN INDICATION
  5. TRAZODONE HCL [Concomitant]
     Indication: INSOMNIA
     Dosage: 1 TO 2 TABLETS AT NIGHT
  6. LAMICTAL [Concomitant]
     Indication: PRODUCT USED FOR UNKNOWN INDICATION
  7. NAMENDA [Concomitant]
     Indication: DEMENTIA
  8. SEROQUEL [Concomitant]
     Indication: MIGRAINE PROPHYLAXIS
     Dosage: AT BEDTIME
  9. ZOLOFT [Concomitant]
     Indication: DEPRESSION
     Dosage: DAILY DOSE: 50MG
  10. METHADONE HCL [Concomitant]
     Indication: ABDOMINAL PAIN UPPER
     Dosage: UP TO 10 TABLETS DAILY
  11. PHENERGAN HCL [Concomitant]
     Indication: NAUSEA
  12. ARICEPT [Concomitant]
     Indication: DEMENTIA
     Dosage: EVERY MORNING
  13. CEREFOLIN [Concomitant]
     Indication: PRODUCT USED FOR UNKNOWN INDICATION
  14. CREON [Concomitant]
     Indication: GASTROINTESTINAL DISORDER
     Dosage: BEFORE MEALS AND AT BEDTIME
  15. ENTOCORT EC [Concomitant]
     Indication: PRODUCT USED FOR UNKNOWN INDICATION
  16. KEPPRA [Concomitant]
     Indication: PRODUCT USED FOR UNKNOWN INDICATION

REACTIONS (2)
  - ASTHENIA [None]
  - CARDIAC ARREST [None]
